FAERS Safety Report 19749949 (Version 4)
Quarter: 2022Q2

REPORT INFORMATION
  Report Type: Spontaneous
  Country: US (occurrence: US)
  Receive Date: 20210826
  Receipt Date: 20220502
  Transmission Date: 20220720
  Serious: No
  Sender: FDA-Public Use
  Company Number: US-PFIZER INC-202100959759

PATIENT
  Age: 53 Year
  Sex: Female
  Weight: 58.51 kg

DRUGS (4)
  1. PREGABALIN [Suspect]
     Active Substance: PREGABALIN
     Indication: Fibromyalgia
     Dosage: 200 MG, 2X/DAY (100MG CAPSULE, 2 CAPSULES TWICE DAILY)
     Route: 048
     Dates: start: 20200327
  2. PREGABALIN [Suspect]
     Active Substance: PREGABALIN
     Indication: Ehlers-Danlos syndrome
  3. PREGABALIN [Suspect]
     Active Substance: PREGABALIN
     Indication: Neuropathy peripheral
  4. TRAMADOL [Concomitant]
     Active Substance: TRAMADOL
     Indication: Pain
     Dosage: 50 MG (EVERY 4-6 HOURS)

REACTIONS (8)
  - Drug ineffective [Unknown]
  - Expired product administered [Unknown]
  - Wrong product administered [Unknown]
  - Visual impairment [Unknown]
  - Pain [Unknown]
  - Gait inability [Unknown]
  - Pain [Unknown]
  - Influenza like illness [Unknown]
